FAERS Safety Report 6640907-8 (Version None)
Quarter: 2010Q1

REPORT INFORMATION
  Report Type: 
  Country: None (occurrence: None)
  Receive Date: 20100318
  Receipt Date: 20100310
  Transmission Date: 20100710
  Serious: Yes (Other)
  Sender: FDA-Public Use
  Company Number: US-PURDUE-USA-2010-0042677

PATIENT
  Sex: Female

DRUGS (1)
  1. OXYCONTIN [Suspect]
     Indication: DRUG USE FOR UNKNOWN INDICATION
     Dosage: 40 MG, Q8H
     Route: 048

REACTIONS (8)
  - DIARRHOEA [None]
  - DRUG WITHDRAWAL SYNDROME [None]
  - FALL [None]
  - FRACTURED COCCYX [None]
  - HEADACHE [None]
  - MELAENA [None]
  - PAIN [None]
  - UNEVALUABLE EVENT [None]
